FAERS Safety Report 5054552-1 (Version None)
Quarter: 2006Q3

REPORT INFORMATION
  Report Type: 
  Country: None (occurrence: None)
  Receive Date: 20060714
  Receipt Date: 20060628
  Transmission Date: 20061208
  Serious: Yes (Hospitalization, Other)
  Sender: FDA-Public Use
  Company Number: DE200606006135

PATIENT
  Age: 48 Year
  Sex: Female

DRUGS (5)
  1. GEMZAR [Suspect]
     Indication: PANCREATIC CARCINOMA
     Dosage: 1000 MG/M2, INTRAVENOUS
     Route: 042
     Dates: start: 20050801
  2. OXALIPLATIN (OXALIPLATIN) [Concomitant]
  3. ANEMET (DOLASETRON MESILATE) [Concomitant]
  4. DEXAMETHASONE [Concomitant]
  5. HAES-STERIL (HYETELLOSE, SODIUM CHLORIDE) [Concomitant]

REACTIONS (5)
  - BODY TEMPERATURE INCREASED [None]
  - HYPERSENSITIVITY [None]
  - INFUSION RELATED REACTION [None]
  - PNEUMOTHORAX [None]
  - PROCEDURAL COMPLICATION [None]
